FAERS Safety Report 8398486-3 (Version None)
Quarter: 2012Q2

REPORT INFORMATION
  Report Type: 
  Country: None (occurrence: None)
  Receive Date: 20120531
  Receipt Date: 20120523
  Transmission Date: 20120825
  Serious: Yes (Hospitalization)
  Sender: FDA-Public Use
  Company Number: DK-ROCHE-1036549

PATIENT
  Sex: Female
  Weight: 58 kg

DRUGS (26)
  1. PREDNISONE [Suspect]
     Indication: B-CELL LYMPHOMA
     Route: 048
     Dates: start: 20120109
  2. CYCLOPHOSPHAMIDE [Suspect]
     Route: 042
     Dates: start: 20120213
  3. VINCRISTINE [Suspect]
     Dosage: LAST DSOE ON: 23-JAN-2012
     Route: 042
     Dates: start: 20120123
  4. FILGRASTIM [Suspect]
     Dosage: LAST DOSE ON-24-JAN-2012
     Route: 058
     Dates: start: 20120124
  5. VENLAFAXINE [Concomitant]
     Indication: DEPRESSION
     Route: 048
     Dates: start: 20120105
  6. MABTHERA [Suspect]
     Route: 042
     Dates: start: 20120218
  7. PREDNISONE [Suspect]
     Dosage: DAY 6, CYCLE 2
     Route: 048
  8. PREDNISONE [Suspect]
     Dosage: DAY 7, CYCLE 2
     Route: 048
  9. PREDNISONE [Suspect]
     Dosage: DAY 8, CYCLE 2
     Route: 048
  10. PREDNISONE [Suspect]
     Dosage: LAST DOSE ON 27-JAN-2012
     Route: 048
     Dates: start: 20120123
  11. DOXORUBICIN HCL [Suspect]
     Indication: B-CELL LYMPHOMA
     Route: 042
     Dates: start: 20120109
  12. FILGRASTIM [Suspect]
     Route: 058
     Dates: start: 20120214
  13. MABTHERA [Suspect]
     Indication: B-CELL LYMPHOMA
     Route: 042
     Dates: start: 20120109
  14. CYCLOPHOSPHAMIDE [Suspect]
     Dosage: LAST DOSE ON 23-JAN-2012
     Route: 042
     Dates: start: 20120123
  15. TENORETIC 100 [Concomitant]
     Indication: HYPERTENSION
     Dosage: 50+ 0.5
     Route: 048
     Dates: start: 20111218
  16. CYCLOPHOSPHAMIDE [Suspect]
     Indication: B-CELL LYMPHOMA
     Route: 042
     Dates: start: 20120109
  17. SIMVASTATIN [Concomitant]
     Indication: BLOOD CHOLESTEROL
     Route: 048
     Dates: start: 20100917
  18. MABTHERA [Suspect]
     Dosage: LAST DOSE ON 23-JAN-2012
     Route: 042
     Dates: start: 20120123
  19. PANTOPRAZOLE [Concomitant]
     Indication: DYSPEPSIA
     Route: 048
     Dates: start: 20120105
  20. CODALGIN [Concomitant]
     Route: 048
     Dates: start: 20120107
  21. FILGRASTIM [Suspect]
     Indication: B-CELL LYMPHOMA
     Route: 058
     Dates: start: 20120110
  22. PREDNISONE [Suspect]
     Route: 048
     Dates: start: 20120213
  23. DOXORUBICIN HCL [Suspect]
     Route: 042
     Dates: start: 20120213
  24. DOXORUBICIN HCL [Suspect]
     Route: 042
     Dates: start: 20120123
  25. VINCRISTINE [Suspect]
     Indication: B-CELL LYMPHOMA
     Route: 042
     Dates: start: 20120109
  26. MIRTAZAPINE [Concomitant]
     Indication: DEPRESSION
     Route: 048
     Dates: start: 20111219

REACTIONS (3)
  - DEHYDRATION [None]
  - WEIGHT DECREASED [None]
  - ORAL CANDIDIASIS [None]
